FAERS Safety Report 5205481-1 (Version None)
Quarter: 2006Q4

REPORT INFORMATION
  Report Type: 
  Country: None (occurrence: None)
  Receive Date: 20061027
  Receipt Date: 20050921
  Transmission Date: 20070319
  Serious: Yes (Other)
  Sender: FDA-Public Use
  Company Number: HQWYE704428SEP05

PATIENT
  Age: 55 Year
  Sex: Female
  Weight: 64.47 kg

DRUGS (1)
  1. PREMARIN [Suspect]
     Dosage: 1 TABLET 1X PER 1 DAY, ORAL
     Route: 048
     Dates: start: 19920901

REACTIONS (4)
  - ANXIETY [None]
  - DRUG INEFFECTIVE [None]
  - NIGHT SWEATS [None]
  - PALPITATIONS [None]
